FAERS Safety Report 5849884-0 (Version None)
Quarter: 2008Q3

REPORT INFORMATION
  Report Type: 
  Country: None (occurrence: None)
  Receive Date: 20080818
  Receipt Date: 20080818
  Transmission Date: 20090109
  Serious: Yes (Other)
  Sender: FDA-Public Use
  Company Number: None

PATIENT
  Age: 42 Year
  Sex: Female
  Weight: 76.2043 kg

DRUGS (1)
  1. LYRICA [Suspect]
     Indication: FIBROMYALGIA
     Dosage: 25 MG CAPSULE 3 TIMES DAY
     Dates: start: 20080501, end: 20080501

REACTIONS (8)
  - ABASIA [None]
  - APHASIA [None]
  - DYSARTHRIA [None]
  - DYSPHEMIA [None]
  - MUSCLE SPASMS [None]
  - MUSCLE TWITCHING [None]
  - NONSPECIFIC REACTION [None]
  - TREMOR [None]
